FAERS Safety Report 8802854 (Version 2)
Quarter: 2013Q1

REPORT INFORMATION
  Report Type: Spontaneous
  Country: US (occurrence: US)
  Receive Date: 20120921
  Receipt Date: 20130201
  Transmission Date: 20140127
  Serious: No
  Sender: FDA-Public Use
  Company Number: US-009507513-1209USA004161

PATIENT
  Sex: Female

DRUGS (2)
  1. ZOCOR [Suspect]
     Dosage: UNK
     Route: 048
     Dates: start: 2002
  2. MEVACOR TABLET [Suspect]
     Dosage: UNK
     Route: 048
     Dates: start: 2002

REACTIONS (2)
  - Drug intolerance [Unknown]
  - Melanocytic naevus [Unknown]
